FAERS Safety Report 4719644-2 (Version None)
Quarter: 2005Q3

REPORT INFORMATION
  Report Type: 
  Country: None (occurrence: None)
  Receive Date: 20050721
  Receipt Date: 20040527
  Transmission Date: 20060218
  Serious: No
  Sender: FDA-Public Use
  Company Number: US-GLAXOSMITHKLINE-A0512401A

PATIENT
  Sex: Female

DRUGS (2)
  1. AVANDIA [Suspect]
     Dosage: 2MG PER DAY
     Route: 048
     Dates: start: 20040301
  2. NO CONCURRENT MEDICATION [Concomitant]

REACTIONS (1)
  - SKIN BURNING SENSATION [None]
